FAERS Safety Report 12800656 (Version 1)
Quarter: 2016Q3

REPORT INFORMATION
  Report Type: Spontaneous
  Country: US (occurrence: US)
  Receive Date: 20160930
  Receipt Date: 20160930
  Transmission Date: 20161109
  Serious: Yes (Other)
  Sender: FDA-Public Use
  Company Number: US-BAUSCH-BL-2016-023843

PATIENT
  Sex: Female

DRUGS (14)
  1. AZELASTINE HYDROCHLORIDE. [Suspect]
     Active Substance: AZELASTINE HYDROCHLORIDE
     Indication: ASTHMA
     Route: 045
  2. EYLEA [Suspect]
     Active Substance: AFLIBERCEPT
     Dosage: RIGHT EYE, ONCE MONTHLY FOR 3 INJECTIONS THEN EVERY 2 MONTHS
     Route: 031
     Dates: start: 20160719, end: 20160719
  3. GABAPENTIN. [Suspect]
     Active Substance: GABAPENTIN
     Dates: start: 20160703, end: 201607
  4. ZYRTEC [Suspect]
     Active Substance: CETIRIZINE HYDROCHLORIDE
     Indication: ASTHMA
     Route: 065
  5. SYMBICORT [Suspect]
     Active Substance: BUDESONIDE\FORMOTEROL FUMARATE DIHYDRATE
     Indication: ASTHMA
     Route: 065
  6. EYLEA [Suspect]
     Active Substance: AFLIBERCEPT
     Indication: NEOVASCULAR AGE-RELATED MACULAR DEGENERATION
     Dosage: RIGHT EYE, ONCE MONTHLY FOR 3 INJECTIONS THEN EVERY 2 MONTHS
     Route: 031
     Dates: start: 20160524, end: 20160524
  7. MONTELUKAST SODIUM. [Suspect]
     Active Substance: MONTELUKAST SODIUM
     Indication: ASTHMA
     Route: 065
  8. SPIRIVA [Suspect]
     Active Substance: TIOTROPIUM BROMIDE MONOHYDRATE
     Indication: ASTHMA
     Route: 065
  9. FLONASE [Suspect]
     Active Substance: FLUTICASONE PROPIONATE
     Indication: ASTHMA
     Route: 045
  10. ZETIA [Concomitant]
     Active Substance: EZETIMIBE
     Indication: PRODUCT USED FOR UNKNOWN INDICATION
     Route: 065
  11. GABAPENTIN. [Suspect]
     Active Substance: GABAPENTIN
     Indication: SPINAL COLUMN STENOSIS
     Route: 065
     Dates: start: 201601, end: 201602
  12. ALBUTEROL. [Suspect]
     Active Substance: ALBUTEROL
     Indication: ASTHMA
     Dosage: 1 AS NECESSARY
  13. EYLEA [Suspect]
     Active Substance: AFLIBERCEPT
     Dosage: RIGHT EYE, ONCE MONTHLY FOR 3 INJECTIONS THEN EVERY 2 MONTHS
     Route: 031
     Dates: start: 20160621, end: 20160621
  14. LOSARTAN POTASSIUM W/HYDROCHLOROTHIAZIDE [Concomitant]
     Active Substance: HYDROCHLOROTHIAZIDE\LOSARTAN POTASSIUM
     Indication: PRODUCT USED FOR UNKNOWN INDICATION
     Route: 065

REACTIONS (6)
  - Eosinophil count increased [Unknown]
  - Pulmonary function test decreased [Unknown]
  - Off label use [Unknown]
  - Transient ischaemic attack [Recovered/Resolved]
  - Drug ineffective for unapproved indication [Unknown]
  - Asthma [Unknown]

NARRATIVE: CASE EVENT DATE: 20160704
